FAERS Safety Report 15135103 (Version 1)
Quarter: 2018Q3

REPORT INFORMATION
  Report Type: Spontaneous
  Country: US (occurrence: US)
  Receive Date: 20180616
  Receipt Date: 20180616
  Transmission Date: 20181010
  Serious: Yes (Hospitalization)
  Sender: FDA-Public Use
  Company Number: None

PATIENT
  Age: 69 Year
  Sex: Male
  Weight: 90 kg

DRUGS (2)
  1. LEUPROLIDE ACETATE. [Suspect]
     Active Substance: LEUPROLIDE ACETATE
     Dates: end: 20171220
  2. CASODEX [Suspect]
     Active Substance: BICALUTAMIDE
     Dates: end: 20161228

REACTIONS (7)
  - Mucosal discolouration [None]
  - Dyspnoea [None]
  - Pneumonia [None]
  - Feeling hot [None]
  - Ex-tobacco user [None]
  - Aortic stenosis [None]
  - Chronic obstructive pulmonary disease [None]

NARRATIVE: CASE EVENT DATE: 20180509
